FAERS Safety Report 14753448 (Version 1)
Quarter: 2018Q2

REPORT INFORMATION
  Report Type: Spontaneous
  Country: DE (occurrence: DE)
  Receive Date: 20180412
  Receipt Date: 20180412
  Transmission Date: 20180711
  Serious: Yes (Hospitalization)
  Sender: FDA-Public Use
  Company Number: PHHY2017DE202201

PATIENT
  Sex: Female

DRUGS (8)
  1. MUCOFALK [Suspect]
     Active Substance: HERBALS\PLANTAGO OVATA LEAF
     Dosage: 20 G, QD (5 G, 4 IN 1 DAY)
     Route: 048
     Dates: start: 20171209, end: 20171209
  2. ACETYLSALICYLIC ACID [Suspect]
     Active Substance: ASPIRIN
     Indication: PRODUCT USED FOR UNKNOWN INDICATION
     Dosage: 100 MG, QD (1 IN 1 D)
     Route: 065
  3. PANTOPRAZOLE [Suspect]
     Active Substance: PANTOPRAZOLE
     Indication: PRODUCT USED FOR UNKNOWN INDICATION
     Dosage: 20 MG, BID (2 IN 1 D)
     Route: 065
  4. MUCOFALK [Suspect]
     Active Substance: HERBALS\PLANTAGO OVATA LEAF
     Indication: ABNORMAL FAECES
     Dosage: 15 G, QD (5 G, 3 IN 1 DAY)
     Route: 048
     Dates: start: 2017, end: 20171208
  5. CORTISONE [Suspect]
     Active Substance: CORTISONE\HYDROCORTISONE
     Indication: PRODUCT USED FOR UNKNOWN INDICATION
     Dosage: 5 G, QD (4 IN 1 D)
     Route: 065
  6. NEPHROTRANS [Suspect]
     Active Substance: SODIUM BICARBONATE
     Indication: PRODUCT USED FOR UNKNOWN INDICATION
     Dosage: 6 G, QD (4 IN 1 D)
     Route: 065
  7. L-THYROX [Suspect]
     Active Substance: LEVOTHYROXINE SODIUM
     Indication: PRODUCT USED FOR UNKNOWN INDICATION
     Dosage: 125 MG, UNK
     Route: 065
  8. OSVAREN [Suspect]
     Active Substance: CALCIUM ACETATE\MAGNESIUM CARBONATE
     Indication: PRODUCT USED FOR UNKNOWN INDICATION
     Dosage: 3 DF, QD (3 IN 1 D)
     Route: 065

REACTIONS (3)
  - Myalgia [Recovered/Resolved]
  - Hyperkalaemia [Recovered/Resolved]
  - Asthenia [Recovered/Resolved]

NARRATIVE: CASE EVENT DATE: 20171210
